FAERS Safety Report 20759721 (Version 1)
Quarter: 2022Q2

REPORT INFORMATION
  Report Type: Spontaneous
  Country: GR (occurrence: GR)
  Receive Date: 20220427
  Receipt Date: 20220427
  Transmission Date: 20220721
  Serious: Yes (Other)
  Sender: FDA-Public Use
  Company Number: GR-PFM-2022-03486

PATIENT

DRUGS (8)
  1. PROPRANOLOL [Suspect]
     Active Substance: PROPRANOLOL HYDROCHLORIDE
     Indication: Arrhythmogenic right ventricular dysplasia
     Dosage: UNK
     Route: 065
  2. PROPRANOLOL [Suspect]
     Active Substance: PROPRANOLOL HYDROCHLORIDE
     Indication: Cardiac resynchronisation therapy
  3. AMIODARONE [Suspect]
     Active Substance: AMIODARONE
     Indication: Arrhythmogenic right ventricular dysplasia
     Dosage: UNK
     Route: 065
  4. AMIODARONE [Suspect]
     Active Substance: AMIODARONE
     Indication: Cardiac resynchronisation therapy
  5. LIDOCAINE [Suspect]
     Active Substance: LIDOCAINE
     Indication: Arrhythmogenic right ventricular dysplasia
     Dosage: UNK
     Route: 065
  6. LIDOCAINE [Suspect]
     Active Substance: LIDOCAINE
     Indication: Cardiac resynchronisation therapy
  7. ENOXAPARIN [Concomitant]
     Active Substance: ENOXAPARIN
     Indication: Arrhythmogenic right ventricular dysplasia
     Route: 065
  8. ENOXAPARIN [Concomitant]
     Active Substance: ENOXAPARIN
     Indication: Cardiac resynchronisation therapy

REACTIONS (4)
  - Ventricular tachycardia [Unknown]
  - Product use in unapproved indication [Unknown]
  - Product use issue [Unknown]
  - Off label use [Unknown]
